FAERS Safety Report 8249752-3 (Version None)
Quarter: 2012Q2

REPORT INFORMATION
  Report Type: 
  Country: None (occurrence: None)
  Receive Date: 20120402
  Receipt Date: 20120320
  Transmission Date: 20120825
  Serious: Yes (Other)
  Sender: FDA-Public Use
  Company Number: PHEH2012US002322

PATIENT
  Sex: Male

DRUGS (7)
  1. GLEEVEC [Suspect]
     Indication: CHRONIC MYELOID LEUKAEMIA
     Dosage: 400 MG, DAILY
     Route: 048
     Dates: start: 20070806
  2. NITROGLYCERIN [Concomitant]
  3. ARANESP [Concomitant]
     Indication: ANAEMIA
     Dosage: 100 MG, UNK
     Route: 058
  4. EFFEXOR [Concomitant]
  5. ALBUTEROL [Concomitant]
  6. POTASSIUM [Concomitant]
  7. LASIX [Concomitant]

REACTIONS (6)
  - CARDIAC VALVE DISEASE [None]
  - CARDIAC FAILURE CONGESTIVE [None]
  - FLUID RETENTION [None]
  - FATIGUE [None]
  - ANAEMIA [None]
  - RED BLOOD CELL COUNT DECREASED [None]
